FAERS Safety Report 25284478 (Version 4)
Quarter: 2025Q3

REPORT INFORMATION
  Report Type: Spontaneous
  Country: US (occurrence: US)
  Receive Date: 20250508
  Receipt Date: 20250818
  Transmission Date: 20251020
  Serious: No
  Sender: IPSEN BIOPHARMACEUTICALS, INC.
  Company Number: US-IPSEN Group, Research and Development-2025-10393

PATIENT
  Age: 65 Year
  Sex: Male
  Weight: 154 kg

DRUGS (11)
  1. TAZVERIK [Suspect]
     Active Substance: TAZEMETOSTAT HYDROBROMIDE
     Indication: Follicular lymphoma
     Dosage: 800 MG TWICE A DAY
     Dates: start: 20250324
  2. ESCITALOPRAM [Concomitant]
     Active Substance: ESCITALOPRAM OXALATE
  3. MELATONIN [Concomitant]
     Active Substance: MELATONIN
  4. OMEPRAZOLE [Concomitant]
     Active Substance: OMEPRAZOLE
  5. ONDANSETRON [Concomitant]
     Active Substance: ONDANSETRON
  6. SUCRALFATE [Concomitant]
     Active Substance: SUCRALFATE
  7. TRAMADOL [Concomitant]
     Active Substance: TRAMADOL
  8. VITAMIN D [Concomitant]
     Active Substance: VITAMIN D NOS
  9. XANAX [Concomitant]
     Active Substance: ALPRAZOLAM
  10. DIAZEPAM [Concomitant]
     Active Substance: DIAZEPAM
  11. CARAFATE [Concomitant]
     Active Substance: SUCRALFATE

REACTIONS (3)
  - Anxiety [Not Recovered/Not Resolved]
  - Muscle spasms [Unknown]
  - Gait disturbance [Unknown]
